FAERS Safety Report 24594374 (Version 1)
Quarter: 2024Q4

REPORT INFORMATION
  Report Type: Spontaneous
  Country: US (occurrence: US)
  Receive Date: 20241108
  Receipt Date: 20241108
  Transmission Date: 20250114
  Serious: Yes (Other)
  Sender: OCULAR
  Company Number: US-OCULAR THERAPEUTIX-2024OCX00133

PATIENT
  Sex: Male

DRUGS (1)
  1. DEXTENZA [Suspect]
     Active Substance: DEXAMETHASONE
     Indication: Cataract operation
     Dosage: 0.4 MG, SINGLE, LACRIMAL CANALICULAR INSERTION, RIGHT EYE
     Route: 047
     Dates: start: 20240814, end: 20241025

REACTIONS (4)
  - Product solubility abnormal [Recovered/Resolved]
  - Lacrimation increased [Unknown]
  - Dacryostenosis acquired [Unknown]
  - Scar [Unknown]

NARRATIVE: CASE EVENT DATE: 20240101
